APPROVED DRUG PRODUCT: HIPPURAN I 131
Active Ingredient: IODOHIPPURATE SODIUM I-131
Strength: 0.25mCi/ML
Dosage Form/Route: INJECTABLE;INJECTION
Application: N016666 | Product #001
Applicant: MALLINCKRODT MEDICAL INC
Approved: Approved Prior to Jan 1, 1982 | RLD: No | RS: No | Type: DISCN